FAERS Safety Report 4360954-9 (Version None)
Quarter: 2004Q2

REPORT INFORMATION
  Report Type: 
  Country: None (occurrence: None)
  Receive Date: 20040517
  Receipt Date: 20040429
  Transmission Date: 20050107
  Serious: No
  Sender: FDA-Public Use
  Company Number: A04200400396

PATIENT
  Sex: Male

DRUGS (1)
  1. ELOXATIN [Suspect]
     Route: 041
     Dates: start: 20040401, end: 20040401

REACTIONS (2)
  - METASTASIS [None]
  - VOCAL CORD PARALYSIS [None]
